FAERS Safety Report 6251777-4 (Version None)
Quarter: 2009Q2

REPORT INFORMATION
  Report Type: 
  Country: None (occurrence: None)
  Receive Date: 20090626
  Receipt Date: 20090626
  Transmission Date: 20091009
  Serious: Yes (Life-Threatening, Hospitalization)
  Sender: FDA-Public Use
  Company Number: 536825

PATIENT
  Age: 67 Year
  Sex: Female
  Weight: 63.5 kg

DRUGS (11)
  1. XELODA [Suspect]
     Indication: COLON CANCER STAGE IV
     Dosage: ORAL
     Route: 048
     Dates: start: 20070721, end: 20080707
  2. AVASTIN [Suspect]
     Indication: DRUG USE FOR UNKNOWN INDICATION
     Dosage: 1 PER 2 WEEK INTRAVENOUS
     Route: 042
  3. PREVACID [Concomitant]
  4. LEVOTHYROXINE SODIUM [Concomitant]
  5. METOPROLOL SUCCINATE [Concomitant]
  6. LORAZEPAM [Concomitant]
  7. COMPAZINE [Concomitant]
  8. ZOSYN [Concomitant]
  9. COREG [Concomitant]
  10. LISINOPRIL [Concomitant]
  11. FLUOROURACIL [Concomitant]

REACTIONS (6)
  - CARDIAC FAILURE CONGESTIVE [None]
  - DIARRHOEA [None]
  - INFLUENZA [None]
  - NAUSEA [None]
  - PALMAR-PLANTAR ERYTHRODYSAESTHESIA SYNDROME [None]
  - VOMITING [None]
